FAERS Safety Report 18906060 (Version 2)
Quarter: 2021Q2

REPORT INFORMATION
  Report Type: Report from Study
  Country: US (occurrence: US)
  Receive Date: 20210217
  Receipt Date: 20210428
  Transmission Date: 20210717
  Serious: Yes (Death, Hospitalization, Other)
  Sender: FDA-Public Use
  Company Number: US-SHIRE-US202006964

PATIENT
  Age: 69 Year
  Sex: Male

DRUGS (1)
  1. CUVITRU [Suspect]
     Active Substance: HUMAN IMMUNOGLOBULIN G
     Indication: PRIMARY IMMUNODEFICIENCY SYNDROME
     Route: 065

REACTIONS (6)
  - Asthma [Unknown]
  - Sepsis [Fatal]
  - Limb amputation [Fatal]
  - Diabetic complication [Unknown]
  - Hepatic cirrhosis [Fatal]
  - Pneumonia [Fatal]

NARRATIVE: CASE EVENT DATE: 20210321
